FAERS Safety Report 19107106 (Version 1)
Quarter: 2021Q2

REPORT INFORMATION
  Report Type: Spontaneous
  Country: US (occurrence: US)
  Receive Date: 20210408
  Receipt Date: 20210408
  Transmission Date: 20210717
  Serious: Yes (Hospitalization, Other)
  Sender: FDA-Public Use
  Company Number: None

PATIENT
  Age: 76 Year
  Sex: Male
  Weight: 63 kg

DRUGS (3)
  1. BAMLANIVIMAB. [Concomitant]
     Active Substance: BAMLANIVIMAB
     Dates: start: 20210407, end: 20210407
  2. BAMLANIVIMAB. [Concomitant]
     Active Substance: BAMLANIVIMAB
     Dates: start: 20210407, end: 20210407
  3. BAMLANIVIMAB/ETESEVIMAB [Suspect]
     Active Substance: BAMLANIVIMAB\ETESEVIMAB

REACTIONS (8)
  - Chills [None]
  - Fatigue [None]
  - Hypoxia [None]
  - Pyrexia [None]
  - Hypersensitivity [None]
  - Malaise [None]
  - Tachycardia [None]
  - Respiratory failure [None]

NARRATIVE: CASE EVENT DATE: 20210407
